FAERS Safety Report 11874345 (Version 1)
Quarter: 2015Q4

REPORT INFORMATION
  Report Type: Spontaneous
  Country: GB (occurrence: GB)
  Receive Date: 20151229
  Receipt Date: 20151229
  Transmission Date: 20160305
  Serious: Yes (Death)
  Sender: FDA-Public Use
  Company Number: GB-009507513-1512GBR011564

PATIENT
  Age: 35 Year
  Sex: Male

DRUGS (8)
  1. CLENIL MODULITE [Concomitant]
     Active Substance: BECLOMETHASONE DIPROPIONATE
     Indication: ASTHMA
     Dosage: 200 MICROGRAM, QD
     Route: 055
     Dates: start: 20150626
  2. ALBUTEROL. [Concomitant]
     Active Substance: ALBUTEROL
     Indication: ASTHMA
     Dosage: 100 MICROGRAM, QD
     Route: 055
     Dates: start: 20150626
  3. VALPROATE SODIUM. [Concomitant]
     Active Substance: VALPROATE SODIUM
     Indication: SCHIZOPHRENIA
     Dosage: 600 MG, QD
     Route: 048
     Dates: start: 20150626
  4. ZAPONEX [Suspect]
     Active Substance: CLOZAPINE
     Indication: SCHIZOPHRENIA
     Dosage: 25 MG MANE AND 600 MG NOCTE
     Route: 048
     Dates: start: 20060118, end: 20151013
  5. SODIUM PHOSPHATE, DIBASIC [Concomitant]
     Active Substance: SODIUM PHOSPHATE, DIBASIC
     Indication: CONSTIPATION
     Dosage: 1 DF, PRN (WHEN NEEDED WEEKLY)
     Route: 054
     Dates: start: 20150626
  6. MIRTAZAPINE. [Suspect]
     Active Substance: MIRTAZAPINE
     Indication: DEPRESSION
     Dosage: 30 MG, QD
     Route: 048
     Dates: start: 20150626
  7. HEMP [Suspect]
     Active Substance: HEMP
     Dosage: UNK
  8. MOVICOL [Concomitant]
     Active Substance: POLYETHYLENE GLYCOL 3350\POTASSIUM CHLORIDE\SODIUM BICARBONATE\SODIUM CHLORIDE
     Indication: CONSTIPATION
     Dosage: 1-2 SACHETS DAILY
     Route: 048
     Dates: start: 20150626

REACTIONS (2)
  - Antipsychotic drug level increased [Not Recovered/Not Resolved]
  - Toxicity to various agents [Fatal]
